FAERS Safety Report 7168028-9 (Version None)
Quarter: 2010Q4

REPORT INFORMATION
  Report Type: 
  Country: None (occurrence: None)
  Receive Date: 20101216
  Receipt Date: 20101206
  Transmission Date: 20110411
  Serious: Yes (Hospitalization)
  Sender: FDA-Public Use
  Company Number: CA-CELGENEUS-028-21880-10120709

PATIENT
  Sex: Male

DRUGS (2)
  1. REVLIMID [Suspect]
     Indication: MULTIPLE MYELOMA
     Route: 048
     Dates: start: 20100924, end: 20101019
  2. DEXAMETHASONE [Suspect]
     Route: 048
     Dates: start: 20100924, end: 20101019

REACTIONS (2)
  - PERICARDITIS [None]
  - PULMONARY EMBOLISM [None]
